FAERS Safety Report 14116517 (Version 4)
Quarter: 2018Q1

REPORT INFORMATION
  Report Type: Spontaneous
  Country: IT (occurrence: IT)
  Receive Date: 20171023
  Receipt Date: 20180212
  Transmission Date: 20180508
  Serious: Yes (Death)
  Sender: FDA-Public Use
  Company Number: IT-SA-2017SA202003

PATIENT
  Age: 80 Year
  Sex: Female
  Weight: 80 kg

DRUGS (9)
  1. ISONIAZID. [Suspect]
     Active Substance: ISONIAZID
     Indication: EXTRAPULMONARY TUBERCULOSIS
     Route: 042
     Dates: start: 20170918, end: 20170925
  2. PYRAZINAMIDE. [Suspect]
     Active Substance: PYRAZINAMIDE
     Indication: EXTRAPULMONARY TUBERCULOSIS
     Route: 042
     Dates: start: 20170918, end: 20170925
  3. DIFLUCAN [Concomitant]
     Active Substance: FLUCONAZOLE
     Indication: ORAL CANDIDIASIS
     Route: 042
     Dates: start: 20170916, end: 20170926
  4. HYDROCHLOROTHIAZIDE/LOSARTAN [Concomitant]
     Dosage: 100 + 25 MG
     Route: 065
  5. LANSOPRAZOLE. [Concomitant]
     Active Substance: LANSOPRAZOLE
     Route: 065
  6. RIFAMPICIN [Suspect]
     Active Substance: RIFAMPIN
     Indication: EXTRAPULMONARY TUBERCULOSIS
     Route: 042
     Dates: start: 20170918, end: 20170925
  7. DIFLUCAN [Concomitant]
     Active Substance: FLUCONAZOLE
     Indication: ORAL CANDIDIASIS
     Route: 048
  8. PARACETAMOL/CODEINE [Concomitant]
     Dosage: 500+ 30 MG
     Route: 065
  9. OLIMEL [Concomitant]
     Active Substance: AMINO ACIDS\DEXTROSE\SOYBEAN OIL
     Indication: MALNUTRITION
     Dosage: AMINO ACIDS NOS/GLUCOSE/LIPIDS NOS) N7 EMULSION FOR INFUSION, 4 SACHETS OF 3 COMPARTMENTS OF 1500 ML
     Route: 042
     Dates: start: 20170916, end: 20170926

REACTIONS (6)
  - Acute hepatic failure [Fatal]
  - Coagulation factor deficiency [Fatal]
  - Sopor [Fatal]
  - Hypotension [Fatal]
  - Anuria [Fatal]
  - Transaminases increased [Fatal]

NARRATIVE: CASE EVENT DATE: 20170925
